FAERS Safety Report 20211881 (Version 1)
Quarter: 2021Q4

REPORT INFORMATION
  Report Type: Spontaneous
  Country: US (occurrence: None)
  Receive Date: 20211221
  Receipt Date: 20211221
  Transmission Date: 20220303
  Serious: No
  Sender: FDA-Public Use
  Company Number: None

PATIENT
  Sex: Female

DRUGS (1)
  1. STELARA [Suspect]
     Active Substance: USTEKINUMAB
     Indication: Psoriatic arthropathy
     Dosage: OTHER QUANTITY : 45MG/0.5ML;?OTHER FREQUENCY : EVERY 12 WEEKS;?
     Route: 058
     Dates: start: 20210624

REACTIONS (1)
  - Drug ineffective [None]
